FAERS Safety Report 21206975 (Version 1)
Quarter: 2022Q3

REPORT INFORMATION
  Report Type: Spontaneous
  Country: NL (occurrence: NL)
  Receive Date: 20220812
  Receipt Date: 20220812
  Transmission Date: 20221026
  Serious: Yes (Disabling)
  Sender: FDA-Public Use
  Company Number: None

PATIENT
  Sex: Female
  Weight: 66 kg

DRUGS (2)
  1. BOTULINUM TOXIN TYPE A [Interacting]
     Active Substance: BOTULINUM TOXIN TYPE A
     Indication: Dystonia
  2. THIOGUANINE ANHYDROUS [Interacting]
     Active Substance: THIOGUANINE ANHYDROUS
     Indication: Colitis ulcerative
     Dosage: 10 MG
     Dates: start: 20210304

REACTIONS (2)
  - Therapeutic product effect decreased [Not Recovered/Not Resolved]
  - Drug interaction [Not Recovered/Not Resolved]
